FAERS Safety Report 14289877 (Version 3)
Quarter: 2020Q2

REPORT INFORMATION
  Report Type: Spontaneous
  Country: JP (occurrence: JP)
  Receive Date: 20171215
  Receipt Date: 20200512
  Transmission Date: 20200713
  Serious: Yes (Hospitalization, Other)
  Sender: FDA-Public Use
  Company Number: JP-ELI_LILLY_AND_COMPANY-JP201712001414

PATIENT
  Age: 64 Year
  Sex: Male

DRUGS (4)
  1. CYRAMZA [Suspect]
     Active Substance: RAMUCIRUMAB
     Indication: COLON CANCER
     Route: 041
  2. 5 FU [Concomitant]
     Active Substance: FLUOROURACIL
     Indication: COLON CANCER
     Route: 042
  3. IRINOTECAN [Concomitant]
     Active Substance: IRINOTECAN
     Indication: COLORECTAL CANCER
     Route: 042
  4. LEVOFOLINATE CALCIUM [Concomitant]
     Active Substance: LEVOLEUCOVORIN CALCIUM
     Indication: COLON CANCER
     Route: 042

REACTIONS (4)
  - Ruptured cerebral aneurysm [Recovering/Resolving]
  - Blood pressure increased [Unknown]
  - Cerebral infarction [Recovered/Resolved]
  - Subarachnoid haemorrhage [Recovered/Resolved]
